FAERS Safety Report 18481863 (Version 1)
Quarter: 2020Q4

REPORT INFORMATION
  Report Type: Spontaneous
  Country: US (occurrence: US)
  Receive Date: 20201109
  Receipt Date: 20201109
  Transmission Date: 20210114
  Serious: Yes (Hospitalization)
  Sender: FDA-Public Use
  Company Number: US-PARATEK PHARMACEUTICALS, INC.-2020PTK00261

PATIENT
  Sex: Male

DRUGS (11)
  1. NUZYRA [Suspect]
     Active Substance: OMADACYCLINE
     Indication: CYSTIC FIBROSIS
     Dosage: 300 MG, 1X/DAY
     Route: 048
  2. AZITHROMYCIN ANHYDROUS. [Concomitant]
     Active Substance: AZITHROMYCIN ANHYDROUS
  3. CREON [Concomitant]
     Active Substance: PANCRELIPASE AMYLASE\PANCRELIPASE LIPASE\PANCRELIPASE PROTEASE
  4. MVW COMPLETE [Concomitant]
  5. PULMOZYME [Concomitant]
     Active Substance: DORNASE ALFA
  6. PHYTONADIONE. [Concomitant]
     Active Substance: PHYTONADIONE
  7. SODIUM CHLOR NEB [Concomitant]
  8. ALBUTEROL NEB [Concomitant]
     Active Substance: ALBUTEROL
  9. BOOST PLUS [Concomitant]
     Active Substance: DIETARY SUPPLEMENT
  10. TRIKAFTA [Concomitant]
     Active Substance: ELEXACAFTOR\IVACAFTOR\TEZACAFTOR
  11. SUPER DAILY DRO [Concomitant]

REACTIONS (2)
  - Drug ineffective for unapproved indication [Not Recovered/Not Resolved]
  - Cystic fibrosis [Not Recovered/Not Resolved]
